FAERS Safety Report 24278443 (Version 1)
Quarter: 2024Q3

REPORT INFORMATION
  Report Type: Spontaneous
  Country: US (occurrence: US)
  Receive Date: 20240903
  Receipt Date: 20240903
  Transmission Date: 20241016
  Serious: No
  Sender: JOHNSON AND JOHNSON
  Company Number: US-JNJFOC-20240867530

PATIENT

DRUGS (3)
  1. XARELTO [Suspect]
     Active Substance: RIVAROXABAN
     Indication: Product used for unknown indication
     Route: 048
  2. LENVIMA [Suspect]
     Active Substance: LENVATINIB
     Indication: Hepatic cancer
     Route: 065
     Dates: start: 20240229
  3. LENVIMA [Suspect]
     Active Substance: LENVATINIB
     Route: 065
     Dates: start: 202405

REACTIONS (3)
  - Epistaxis [Unknown]
  - Pollakiuria [Unknown]
  - Fatigue [Recovering/Resolving]
